FAERS Safety Report 8580812-3 (Version None)
Quarter: 2012Q3

REPORT INFORMATION
  Report Type: 
  Country: None (occurrence: None)
  Receive Date: 20120809
  Receipt Date: 20120726
  Transmission Date: 20120928
  Serious: Yes (Death, Other)
  Sender: FDA-Public Use
  Company Number: GB-RANBAXY-2011R1-44153

PATIENT
  Age: 23 Year
  Sex: Female

DRUGS (3)
  1. METFORMIN HYDROCHLORIDE [Suspect]
     Indication: PRODUCT USED FOR UNKNOWN INDICATION
     Dosage: UNK,UNK
     Route: 065
  2. SIMVASTATIN [Suspect]
     Indication: PRODUCT USED FOR UNKNOWN INDICATION
     Route: 065
  3. INSULIN [Suspect]
     Indication: PRODUCT USED FOR UNKNOWN INDICATION
     Dosage: UNK,UNK
     Route: 065

REACTIONS (2)
  - BLINDNESS [None]
  - DIABETIC KETOACIDOSIS [None]
